FAERS Safety Report 7757511-0 (Version None)
Quarter: 2011Q3

REPORT INFORMATION
  Report Type: 
  Country: None (occurrence: None)
  Receive Date: 20110916
  Receipt Date: 20110906
  Transmission Date: 20111222
  Serious: Yes (Other)
  Sender: FDA-Public Use
  Company Number: US-BRISTOL-MYERS SQUIBB COMPANY-16056327

PATIENT
  Age: 6 Week
  Sex: Female

DRUGS (1)
  1. POTASSIUM CHLORIDE [Suspect]

REACTIONS (7)
  - MEDICATION ERROR [None]
  - OVERDOSE [None]
  - BLOOD POTASSIUM INCREASED [None]
  - CARDIAC ARREST [None]
  - DEAFNESS [None]
  - VENOUS THROMBOSIS [None]
  - DRUG PRESCRIBING ERROR [None]
